FAERS Safety Report 9242516 (Version 1)
Quarter: 2013Q2

REPORT INFORMATION
  Report Type: Other
  Country: JP (occurrence: JP)
  Receive Date: 20130419
  Receipt Date: 20130419
  Transmission Date: 20140414
  Serious: Yes (Other)
  Sender: FDA-Public Use
  Company Number: JP-NAPPMUNDI-DEU-2013-0010769

PATIENT
  Age: 71 Year
  Sex: Male

DRUGS (4)
  1. MORPHINE SULFATE CR TABLET [Suspect]
     Indication: METASTATIC PAIN
     Dosage: UNK
     Route: 048
  2. CARBOPLATIN [Suspect]
     Indication: CHEMOTHERAPY
     Route: 065
  3. PACLITAXEL [Suspect]
     Indication: CHEMOTHERAPY
     Route: 065
  4. ZOLEDRONIC ACID [Concomitant]
     Indication: METASTATIC PAIN
     Route: 065

REACTIONS (2)
  - Portal venous gas [Recovered/Resolved]
  - Constipation [Unknown]
